FAERS Safety Report 9454389 (Version 1)
Quarter: 2013Q3

REPORT INFORMATION
  Report Type: Report from Study
  Country: US (occurrence: US)
  Receive Date: 20130812
  Receipt Date: 20130812
  Transmission Date: 20140515
  Serious: Yes (Life-Threatening, Hospitalization, Other)
  Sender: FDA-Public Use
  Company Number: US-TEVA-425595USA

PATIENT
  Age: 70 Year
  Sex: Male
  Weight: 75.3 kg

DRUGS (14)
  1. TREANDA [Suspect]
     Indication: AMYLOIDOSIS
     Dosage: DAYS 1, 2
     Route: 042
     Dates: start: 20130529, end: 20130626
  2. DEXAMETHASONE [Suspect]
     Dosage: DAYS 1, 8, 15, 22
     Route: 048
     Dates: start: 20130529, end: 20130627
  3. LYRICA [Concomitant]
     Dosage: NIGHTLY
  4. TORSEMIDE [Concomitant]
     Dosage: 60 MILLIGRAM DAILY;
  5. XARELTO [Concomitant]
     Dosage: 15 MILLIGRAM DAILY;
  6. SPIRONOLACTONE [Concomitant]
     Dosage: 12.5 MILLIGRAM DAILY;
  7. FINASTERIDE [Concomitant]
  8. FENTANYL [Concomitant]
     Dosage: 4 MICROGRAM DAILY;
  9. ACYCLOVIR [Concomitant]
     Dosage: 800 MILLIGRAM DAILY;
  10. COLACE [Concomitant]
     Dosage: AT NIGHT
  11. FLUCONAZOLE [Concomitant]
     Dosage: 200 MILLIGRAM DAILY;
  12. PANTOPRAZOLE [Concomitant]
     Dosage: 40 MILLIGRAM DAILY;
  13. SENNA [Concomitant]
     Dosage: AT NIGHT
  14. MIRALAX [Concomitant]

REACTIONS (1)
  - Cardiac arrest [Unknown]
